FAERS Safety Report 4366377-0 (Version None)
Quarter: 2004Q2

REPORT INFORMATION
  Report Type: 
  Country: None (occurrence: None)
  Receive Date: 20040527
  Receipt Date: 20040315
  Transmission Date: 20050107
  Serious: No
  Sender: FDA-Public Use
  Company Number: US-GLAXOSMITHKLINE-A0502855A

PATIENT
  Age: 63 Year
  Sex: Male

DRUGS (8)
  1. ALBUTEROL [Suspect]
     Indication: ASTHMA
     Route: 055
  2. SEREVENT [Suspect]
     Indication: ASTHMA
     Dosage: 1PUFF TWICE PER DAY
     Route: 055
  3. SEREVENT [Suspect]
     Dosage: 2PUFF TWICE PER DAY
     Route: 055
  4. COMBIVENT [Concomitant]
  5. AZMACORT [Concomitant]
  6. LOTENSIN [Concomitant]
  7. PLENDIL [Concomitant]
  8. THEOPHYLLINE [Concomitant]

REACTIONS (6)
  - DIZZINESS [None]
  - DRUG INEFFECTIVE [None]
  - DYSPNOEA [None]
  - FEELING JITTERY [None]
  - HEART RATE INCREASED [None]
  - NERVOUSNESS [None]
